FAERS Safety Report 6356177-4 (Version None)
Quarter: 2009Q3

REPORT INFORMATION
  Report Type: 
  Country: None (occurrence: None)
  Receive Date: 20090911
  Receipt Date: 20090911
  Transmission Date: 20100115
  Serious: Yes (Other)
  Sender: FDA-Public Use
  Company Number: None

PATIENT
  Age: 49 Year
  Sex: Female
  Weight: 49.8957 kg

DRUGS (1)
  1. SEPTOCAINE [Suspect]

REACTIONS (5)
  - CONFUSIONAL STATE [None]
  - JAW DISORDER [None]
  - SWELLING [None]
  - SWELLING FACE [None]
  - TRISMUS [None]
